FAERS Safety Report 7534544-0 (Version None)
Quarter: 2011Q2

REPORT INFORMATION
  Report Type: 
  Country: None (occurrence: None)
  Receive Date: 20110609
  Receipt Date: 20090729
  Transmission Date: 20111010
  Serious: Yes (Death, Hospitalization, Other)
  Sender: FDA-Public Use
  Company Number: PHHY2009FR30771

PATIENT
  Sex: Male
  Weight: 75 kg

DRUGS (1)
  1. ZOMETA [Suspect]
     Dosage: UNK
     Dates: start: 20081022

REACTIONS (6)
  - METASTASES TO LYMPH NODES [None]
  - RENAL FAILURE ACUTE [None]
  - METASTASES TO LIVER [None]
  - HYPOCALCAEMIA [None]
  - DISEASE PROGRESSION [None]
  - DEATH [None]
